FAERS Safety Report 14836196 (Version 4)
Quarter: 2021Q1

REPORT INFORMATION
  Report Type: Spontaneous
  Country: US (occurrence: US)
  Receive Date: 20180502
  Receipt Date: 20210127
  Transmission Date: 20210419
  Serious: No
  Sender: FDA-Public Use
  Company Number: US-PFIZER INC-2018177234

PATIENT
  Age: 13 Year
  Sex: Male

DRUGS (3)
  1. GENOTROPIN [Suspect]
     Active Substance: SOMATROPIN
     Indication: BLOOD GROWTH HORMONE
     Dosage: 1.8 MG, 6 DAYS PER WEEK
     Route: 058
     Dates: start: 20150819
  2. GENOTROPIN [Suspect]
     Active Substance: SOMATROPIN
     Dosage: 2 MG, CYCLIC (SIX DAYS A WEEK)
     Dates: start: 20170316
  3. GENOTROPIN [Suspect]
     Active Substance: SOMATROPIN
     Indication: GROWTH HORMONE DEFICIENCY
     Dosage: 1.8 MG, ONCE A DAY IN THE EVENING RIGHT BEFORE BED, 6 OUT OF 7 DAYS

REACTIONS (1)
  - Therapeutic product effect incomplete [Unknown]
